FAERS Safety Report 7403660-6 (Version None)
Quarter: 2011Q2

REPORT INFORMATION
  Report Type: 
  Country: None (occurrence: None)
  Receive Date: 20110408
  Receipt Date: 20110325
  Transmission Date: 20111010
  Serious: Yes (Hospitalization, Other)
  Sender: FDA-Public Use
  Company Number: PHHY2011SE24901

PATIENT
  Sex: Male

DRUGS (7)
  1. OXYCODON-HCL HEXAL [Interacting]
     Indication: PROSTATE CANCER
     Dosage: UNK
     Route: 048
     Dates: start: 20101101, end: 20110101
  2. ATENOLOL [Suspect]
     Indication: HYPERTENSION
     Dosage: 100 MG, QD
     Route: 048
     Dates: end: 20110101
  3. DIGOXIN [Interacting]
     Indication: ATRIAL FIBRILLATION
     Dosage: 13 MG, QD
     Route: 048
     Dates: end: 20110101
  4. ATACAND [Concomitant]
     Dosage: 8 MG, UNK
  5. OMEPRAZOLE [Concomitant]
  6. ALLOPURINOL [Concomitant]
     Dosage: 100 MG, UNK
  7. TROMBYL [Concomitant]
     Dosage: 160 MG, UNK

REACTIONS (9)
  - DRUG THERAPEUTIC INCOMPATIBILITY [None]
  - FATIGUE [None]
  - CONSTIPATION [None]
  - DRUG INTERACTION [None]
  - DECREASED APPETITE [None]
  - CEREBRAL DISORDER [None]
  - BRADYCARDIA [None]
  - CONFUSIONAL STATE [None]
  - DRUG LEVEL INCREASED [None]
